FAERS Safety Report 4839707-0 (Version None)
Quarter: 2005Q4

REPORT INFORMATION
  Report Type: 
  Country: None (occurrence: None)
  Receive Date: 20051129
  Receipt Date: 20050628
  Transmission Date: 20060501
  Serious: No
  Sender: FDA-Public Use
  Company Number: US-GLAXOSMITHKLINE-A0564489A

PATIENT
  Sex: Female

DRUGS (4)
  1. WELLBUTRIN SR [Suspect]
     Indication: FATIGUE
     Dosage: 150MG TWICE PER DAY
     Route: 048
     Dates: start: 20040101
  2. HYDROCHLOROTHIAZIDE [Concomitant]
  3. PREMARIN [Concomitant]
     Route: 065
  4. ZOCOR [Concomitant]

REACTIONS (1)
  - SLEEP DISORDER [None]
